FAERS Safety Report 16093796 (Version 1)
Quarter: 2019Q1

REPORT INFORMATION
  Report Type: Spontaneous
  Country: US (occurrence: US)
  Receive Date: 20190320
  Receipt Date: 20190320
  Transmission Date: 20190418
  Serious: No
  Sender: FDA-Public Use
  Company Number: US-MACLEODS PHARMACEUTICALS US LTD-MAC2019020497

PATIENT

DRUGS (1)
  1. LOSARTAN POTASSIUM/HYDROCHLOROTHIAZIDE TABLET 100 MG/25 MG [Suspect]
     Active Substance: HYDROCHLOROTHIAZIDE\LOSARTAN POTASSIUM
     Indication: PRODUCT USED FOR UNKNOWN INDICATION
     Dosage: UNK, LOSARTAN POTASSIUM 100 MG/HYDROCHLOROTHIAZIDE TABLET 25 MG
     Route: 048
     Dates: start: 20180312

REACTIONS (1)
  - Blood pressure increased [Unknown]
